FAERS Safety Report 7684838-3 (Version None)
Quarter: 2011Q3

REPORT INFORMATION
  Report Type: 
  Country: None (occurrence: None)
  Receive Date: 20110816
  Receipt Date: 20110803
  Transmission Date: 20111222
  Serious: No
  Sender: FDA-Public Use
  Company Number: US-JNJFOC-20110803581

PATIENT
  Sex: Female

DRUGS (12)
  1. SANDOZ FENTANYL TRASDERMAL SYSTEM [Suspect]
     Indication: PROCTALGIA
     Route: 062
     Dates: start: 20101201, end: 20110501
  2. FENTANYL [Suspect]
     Route: 062
     Dates: start: 20110802
  3. SANDOZ FENTANYL TRASDERMAL SYSTEM [Suspect]
     Route: 062
     Dates: start: 20101201, end: 20110501
  4. FENTANYL [Suspect]
     Indication: PROCTALGIA
     Route: 062
     Dates: start: 20110802
  5. FENTANYL-100 [Suspect]
     Route: 062
     Dates: start: 20110101, end: 20110802
  6. FENTANYL-100 [Suspect]
     Route: 062
     Dates: start: 20110101, end: 20110802
  7. SENOKOT [Concomitant]
     Indication: CONSTIPATION
     Dosage: 2 TALETS EVERY OTHER DAY
     Route: 048
  8. FENTANYL-100 [Suspect]
     Indication: PROCTALGIA
     Route: 062
     Dates: start: 20110501
  9. UNKNOWN MEDICATION [Concomitant]
     Indication: CONSTIPATION
     Dosage: AS NEEDED
     Route: 048
  10. SANDOZ FENTANYL TRASDERMAL SYSTEM [Suspect]
     Route: 062
     Dates: start: 20110501, end: 20110801
  11. FENTANYL-100 [Suspect]
     Route: 062
     Dates: start: 20110501
  12. SANDOZ FENTANYL TRASDERMAL SYSTEM [Suspect]
     Route: 062
     Dates: start: 20110501, end: 20110801

REACTIONS (11)
  - INSOMNIA [None]
  - DRUG PRESCRIBING ERROR [None]
  - TOOTH LOSS [None]
  - LIMB DISCOMFORT [None]
  - DRUG EFFECT DECREASED [None]
  - NERVOUSNESS [None]
  - ABDOMINAL PAIN [None]
  - FEAR [None]
  - CONSTIPATION [None]
  - DRY MOUTH [None]
  - LIP SWELLING [None]
